FAERS Safety Report 20003647 (Version 2)
Quarter: 2022Q1

REPORT INFORMATION
  Report Type: Spontaneous
  Country: VN (occurrence: VN)
  Receive Date: 20211028
  Receipt Date: 20220103
  Transmission Date: 20220423
  Serious: Yes (Hospitalization)
  Sender: FDA-Public Use
  Company Number: VN-NOVARTISPH-NVSC2021VN241630

PATIENT
  Age: 27 Year
  Sex: Male

DRUGS (11)
  1. SECUKINUMAB [Suspect]
     Active Substance: SECUKINUMAB
     Indication: Ankylosing spondylitis
     Dosage: 150 MG
     Route: 058
     Dates: start: 201902, end: 201903
  2. SECUKINUMAB [Suspect]
     Active Substance: SECUKINUMAB
     Dosage: 150 MG
     Route: 058
     Dates: start: 201904, end: 201909
  3. SECUKINUMAB [Suspect]
     Active Substance: SECUKINUMAB
     Dosage: 150 MG
     Route: 058
     Dates: start: 201910, end: 202008
  4. SECUKINUMAB [Suspect]
     Active Substance: SECUKINUMAB
     Dosage: 150 MG
     Route: 058
     Dates: start: 202009, end: 202102
  5. SECUKINUMAB [Suspect]
     Active Substance: SECUKINUMAB
     Dosage: 150 MG
     Route: 058
     Dates: start: 202104, end: 202106
  6. EPERISONA [Concomitant]
     Indication: Spondylitis
     Dosage: 50 MG, BID
     Route: 065
     Dates: start: 201902, end: 202103
  7. ETORICOXIB [Concomitant]
     Active Substance: ETORICOXIB
     Indication: Spondylitis
     Dosage: 90 MG, QD
     Route: 065
     Dates: start: 201903, end: 201903
  8. ETORICOXIB [Concomitant]
     Active Substance: ETORICOXIB
     Dosage: 90 MG, QD
     Route: 065
     Dates: start: 201904, end: 201904
  9. ETORICOXIB [Concomitant]
     Active Substance: ETORICOXIB
     Dosage: 60 MG, PRN
     Route: 065
     Dates: start: 201906, end: 201906
  10. CELECOXIB [Concomitant]
     Active Substance: CELECOXIB
     Indication: Spondylitis
     Dosage: 400 MG, QD
     Route: 065
     Dates: start: 201906, end: 201907
  11. CELECOXIB [Concomitant]
     Active Substance: CELECOXIB
     Dosage: 200 MG, PRN
     Route: 065
     Dates: start: 201908, end: 201909

REACTIONS (10)
  - Pharyngitis [Recovered/Resolved]
  - Chronic tonsillitis [Recovered/Resolved]
  - Pyrexia [Recovered/Resolved]
  - Oropharyngeal pain [Recovered/Resolved]
  - Gastrooesophageal reflux disease [Unknown]
  - Pharyngitis [Recovered/Resolved]
  - Pyrexia [Recovered/Resolved]
  - Cough [Recovered/Resolved]
  - Oropharyngeal pain [Recovered/Resolved]
  - Inappropriate schedule of product administration [Unknown]

NARRATIVE: CASE EVENT DATE: 20190401
